FAERS Safety Report 8300870-0 (Version None)
Quarter: 2012Q2

REPORT INFORMATION
  Report Type: 
  Country: None (occurrence: None)
  Receive Date: 20120420
  Receipt Date: 20120405
  Transmission Date: 20120825
  Serious: Yes (Death)
  Sender: FDA-Public Use
  Company Number: US-ENDO PHARMACEUTICALS INC.-VALS20120021

PATIENT
  Sex: Male

DRUGS (1)
  1. VALSTAR PRESERVATIVE FREE [Suspect]
     Indication: BLADDER CANCER
     Dosage: UNK
     Route: 043
     Dates: end: 20110610

REACTIONS (1)
  - DEATH [None]
